FAERS Safety Report 7967898-1 (Version None)
Quarter: 2011Q4

REPORT INFORMATION
  Report Type: 
  Country: None (occurrence: None)
  Receive Date: 20111207
  Receipt Date: 20111122
  Transmission Date: 20120403
  Serious: Yes (Death)
  Sender: FDA-Public Use
  Company Number: TPA2011A07921

PATIENT
  Age: 63 Year
  Sex: Male

DRUGS (7)
  1. RIFAMICINA (RIFAMYCIN) [Concomitant]
  2. ADENURIC (FEBUXOSTAT) [Suspect]
     Indication: HYPERURICAEMIA
     Dosage: 120 MG (120 MG,1 IN 1 D) PER ORAL
     Route: 048
     Dates: start: 20111028, end: 20111108
  3. FUROSEMIDE [Concomitant]
  4. RABEPRAZOLE SODIUM [Concomitant]
  5. POTASSIUM CANRENOATE (POTASSIUM CANRENOATE) [Concomitant]
  6. LATTULOSIO (LACTULOSE) [Concomitant]
  7. ATENOLOL NYCOMED (ATENOLOL) [Concomitant]

REACTIONS (3)
  - DIALYSIS [None]
  - RENAL FAILURE ACUTE [None]
  - BLOOD IMMUNOGLOBULIN E INCREASED [None]
